FAERS Safety Report 8902181 (Version 7)
Quarter: 2013Q1

REPORT INFORMATION
  Report Type: Report from Study
  Country: US (occurrence: US)
  Receive Date: 20121112
  Receipt Date: 20130226
  Transmission Date: 20140127
  Serious: Yes (Hospitalization, Other)
  Sender: FDA-Public Use
  Company Number: US-AMGEN-USACT2012069078

PATIENT
  Age: 47 Year
  Sex: Male
  Weight: 72.2 kg

DRUGS (2)
  1. EPOETIN ALFA - PROCRIT [Suspect]
     Indication: MYELODYSPLASTIC SYNDROME
     Dosage: 60000 IU, QWK
     Route: 058
     Dates: start: 20120828
  2. LENALIDOMIDE [Concomitant]
     Indication: MYELODYSPLASTIC SYNDROME
     Dosage: 10 MG, UNK
     Route: 048
     Dates: start: 20120828

REACTIONS (9)
  - Dyspnoea [Recovered/Resolved]
  - Abscess [Unknown]
  - Alanine aminotransferase increased [Recovering/Resolving]
  - Blood alkaline phosphatase increased [Recovered/Resolved]
  - Fatigue [Recovered/Resolved]
  - Abdominal infection [Unknown]
  - Anaemia [Recovered/Resolved]
  - Febrile neutropenia [Recovered/Resolved]
  - Depression [Unknown]
